FAERS Safety Report 4293685-4 (Version None)
Quarter: 2004Q1

REPORT INFORMATION
  Report Type: 
  Country: None (occurrence: None)
  Receive Date: 20040126
  Receipt Date: 20030828
  Transmission Date: 20041129
  Serious: No
  Sender: FDA-Public Use
  Company Number: USA030845765

PATIENT
  Age: 60 Year
  Sex: Male

DRUGS (3)
  1. FORTEO [Suspect]
     Indication: OSTEOPOROSIS
     Dosage: 20 UG/SAY
     Dates: start: 20030801
  2. SYNTHROID [Concomitant]
  3. TESTOSTERONE [Concomitant]

REACTIONS (4)
  - BLISTER [None]
  - RASH [None]
  - RASH MACULAR [None]
  - SKIN DISORDER [None]
